FAERS Safety Report 8617942-3 (Version None)
Quarter: 2012Q3

REPORT INFORMATION
  Report Type: 
  Country: None (occurrence: None)
  Receive Date: 20120824
  Receipt Date: 20120306
  Transmission Date: 20120928
  Serious: No
  Sender: FDA-Public Use
  Company Number: US-ASTRAZENECA-2012SE15141

PATIENT
  Age: 55 Year
  Sex: Male
  Weight: 64.4 kg

DRUGS (11)
  1. PROAIR HFA [Concomitant]
  2. SYMBICORT [Suspect]
     Indication: CHRONIC OBSTRUCTIVE PULMONARY DISEASE
     Dosage: 2 PUFFS, TWICE A DAY
     Route: 055
  3. SEROQUEL [Suspect]
     Indication: DEPRESSION
     Route: 048
  4. NEXIUM [Suspect]
     Indication: GASTROOESOPHAGEAL REFLUX DISEASE
     Route: 048
  5. SEROQUEL [Suspect]
     Indication: SLEEP DISORDER
     Route: 048
  6. XYZAL [Concomitant]
  7. SPIRIVA [Concomitant]
  8. SINGULAIR [Concomitant]
  9. MECLIZINE [Concomitant]
  10. CELEXA [Concomitant]
  11. SYMBICORT [Suspect]
     Indication: EMPHYSEMA
     Dosage: 2 PUFFS, TWICE A DAY
     Route: 055

REACTIONS (3)
  - DRUG DOSE OMISSION [None]
  - DRUG PRESCRIBING ERROR [None]
  - ROAD TRAFFIC ACCIDENT [None]
